FAERS Safety Report 9387205 (Version 1)
Quarter: 2013Q3

REPORT INFORMATION
  Report Type: Spontaneous
  Country: ES (occurrence: ES)
  Receive Date: 20130708
  Receipt Date: 20130708
  Transmission Date: 20140515
  Serious: Yes (Other)
  Sender: FDA-Public Use
  Company Number: ES-OTSUKA-EU-2013-10164

PATIENT
  Age: 69 Year
  Sex: Male

DRUGS (2)
  1. EKISTOL [Suspect]
     Indication: INTERMITTENT CLAUDICATION
     Dosage: 200 MG MILLIGRAM(S), DAILY DOSE
     Route: 048
     Dates: start: 20130204, end: 20130523
  2. EKISTOL [Suspect]
     Dosage: 200 MG MILLIGRAM(S), DAILY DOSE
     Route: 048
     Dates: start: 201305, end: 2013

REACTIONS (4)
  - Loss of consciousness [Recovered/Resolved]
  - Syncope [Recovered/Resolved]
  - Syncope [Recovered/Resolved]
  - Hypotension [Unknown]
